FAERS Safety Report 4347193-2 (Version None)
Quarter: 2004Q2

REPORT INFORMATION
  Report Type: 
  Country: None (occurrence: None)
  Receive Date: 20040422
  Receipt Date: 20040405
  Transmission Date: 20050107
  Serious: Yes (Disabling, Other)
  Sender: FDA-Public Use
  Company Number: GBS040414693

PATIENT
  Age: 47 Year
  Sex: Female
  Weight: 90 kg

DRUGS (1)
  1. FLUOXETINE HCL [Suspect]
     Dosage: 40 MG
     Dates: start: 20020719, end: 20030823

REACTIONS (6)
  - ARTHRALGIA [None]
  - JOINT SWELLING [None]
  - OEDEMA PERIPHERAL [None]
  - PALINDROMIC RHEUMATISM [None]
  - RASH ERYTHEMATOUS [None]
  - URTICARIA [None]
